FAERS Safety Report 18169214 (Version 1)
Quarter: 2020Q3

REPORT INFORMATION
  Report Type: Spontaneous
  Country: US (occurrence: US)
  Receive Date: 20200819
  Receipt Date: 20200819
  Transmission Date: 20201103
  Serious: Yes (Hospitalization)
  Sender: FDA-Public Use
  Company Number: None

PATIENT
  Age: 70 Year
  Sex: Female
  Weight: 91.35 kg

DRUGS (15)
  1. APAP [Concomitant]
     Active Substance: ACETAMINOPHEN
  2. SEVELAMER [Concomitant]
     Active Substance: SEVELAMER
  3. CYCLOBENZAPRINE. [Concomitant]
     Active Substance: CYCLOBENZAPRINE
  4. COMBIGAN [Concomitant]
     Active Substance: BRIMONIDINE TARTRATE\TIMOLOL MALEATE
  5. LATANOPROST. [Concomitant]
     Active Substance: LATANOPROST
  6. NINLARO [Suspect]
     Active Substance: IXAZOMIB CITRATE
     Indication: PLASMA CELL MYELOMA
     Route: 048
     Dates: start: 20200730
  7. REVLIMID [Concomitant]
     Active Substance: LENALIDOMIDE
  8. ASPIRIN. [Concomitant]
     Active Substance: ASPIRIN
  9. TRAMADOL. [Concomitant]
     Active Substance: TRAMADOL
  10. DORZOLAMIDE [Concomitant]
     Active Substance: DORZOLAMIDE
  11. AMLACTIN [Concomitant]
     Active Substance: AMMONIUM LACTATE
  12. ONDANSETRON [Concomitant]
     Active Substance: ONDANSETRON
  13. ATORVASTATIN [Concomitant]
     Active Substance: ATORVASTATIN
  14. VITAMIN D [Concomitant]
     Active Substance: VITAMIN D NOS
  15. LYRICA [Concomitant]
     Active Substance: PREGABALIN

REACTIONS (1)
  - Hospitalisation [None]
